FAERS Safety Report 8541791 (Version 3)
Quarter: 2013Q2

REPORT INFORMATION
  Report Type: Spontaneous
  Country: DK (occurrence: JP)
  Receive Date: 20120502
  Receipt Date: 20130605
  Transmission Date: 20140414
  Serious: Yes (Life-Threatening)
  Sender: FDA-Public Use
  Company Number: JP-FRI-1000030140

PATIENT
  Age: 41 Year
  Sex: Male

DRUGS (6)
  1. LEXAPRO [Suspect]
     Indication: DEPRESSION
     Dosage: 20 MG
     Route: 048
     Dates: start: 20111221, end: 20120328
  2. REFLEX [Concomitant]
     Dosage: 15 MG
     Route: 048
     Dates: start: 20120222
  3. REFLEX [Concomitant]
     Dosage: 45 MG
  4. GASMOTIN [Concomitant]
     Dosage: 5 MG
     Route: 048
     Dates: start: 20110221
  5. ROHYPNOL [Concomitant]
     Dosage: 2 MG
     Route: 048
     Dates: start: 20111221
  6. RESLIN [Concomitant]
     Dosage: 200 MG
     Route: 048
     Dates: start: 20120111

REACTIONS (1)
  - Hypertriglyceridaemia [Recovered/Resolved]
